FAERS Safety Report 25174423 (Version 1)
Quarter: 2025Q2

REPORT INFORMATION
  Report Type: Spontaneous
  Country: US (occurrence: US)
  Receive Date: 20250408
  Receipt Date: 20250408
  Transmission Date: 20250716
  Serious: Yes (Death)
  Sender: GUERBET
  Company Number: US-GUERBET / LLC-US-20250067

PATIENT
  Sex: Male

DRUGS (3)
  1. LIPIODOL [Suspect]
     Active Substance: ETHIODIZED OIL
     Indication: Therapeutic embolisation
     Dosage: MIXTURE OF LIPIODOL, GEL FOAM AND SOTRADECOL
  2. SOTRADECOL [Suspect]
     Active Substance: SODIUM TETRADECYL SULFATE
     Indication: Therapeutic embolisation
  3. GELFOAM [Suspect]
     Active Substance: DEVICE\GELATIN
     Indication: Therapeutic embolisation

REACTIONS (3)
  - Pulmonary artery occlusion [Fatal]
  - Device dislocation [Fatal]
  - Product use in unapproved indication [Fatal]
